FAERS Safety Report 5146267-6 (Version None)
Quarter: 2006Q4

REPORT INFORMATION
  Report Type: 
  Country: None (occurrence: None)
  Receive Date: 20061108
  Receipt Date: 20061024
  Transmission Date: 20070319
  Serious: Yes (Death)
  Sender: FDA-Public Use
  Company Number: US-ELI_LILLY_AND_COMPANY-US200611001091

PATIENT
  Age: 47 Year
  Sex: Male

DRUGS (1)
  1. GEMCITABINE HCL [Suspect]
     Indication: NEOPLASM MALIGNANT
     Dosage: 6 MG/M2, OTHER
     Route: 042

REACTIONS (1)
  - ACUTE RESPIRATORY FAILURE [None]
